FAERS Safety Report 9000087 (Version 1)
Quarter: 2013Q1

REPORT INFORMATION
  Report Type: Spontaneous
  Country: FR (occurrence: FR)
  Receive Date: 20130102
  Receipt Date: 20130102
  Transmission Date: 20140127
  Serious: Yes (Hospitalization)
  Sender: FDA-Public Use
  Company Number: FR-SANOFI-AVENTIS-2012SA093929

PATIENT
  Age: 63 Year
  Sex: Male

DRUGS (5)
  1. PLAVIX [Suspect]
     Indication: PRODUCT USED FOR UNKNOWN INDICATION
     Route: 048
     Dates: end: 20121018
  2. KARDEGIC [Suspect]
     Indication: PRODUCT USED FOR UNKNOWN INDICATION
     Route: 048
     Dates: end: 20121018
  3. LOPRESSOR [Concomitant]
     Dosage: STRENGTH: 200 MG
     Route: 048
  4. BIPRETERAX [Concomitant]
     Route: 048
  5. ATORVASTATIN [Concomitant]
     Route: 048

REACTIONS (2)
  - Oesophagitis ulcerative [Recovering/Resolving]
  - Melaena [Recovered/Resolved]
